FAERS Safety Report 12583819 (Version 2)
Quarter: 2016Q3

REPORT INFORMATION
  Report Type: Spontaneous
  Country: US (occurrence: US)
  Receive Date: 20160722
  Receipt Date: 20160902
  Transmission Date: 20161109
  Serious: Yes (Other)
  Sender: FDA-Public Use
  Company Number: US-JAZZ-2016-US-011055

PATIENT
  Sex: Female

DRUGS (21)
  1. RIZATRIPTAN. [Concomitant]
     Active Substance: RIZATRIPTAN
  2. MAGNESIUM [Concomitant]
     Active Substance: MAGNESIUM
  3. DEPO-ESTRADIOL [Concomitant]
     Active Substance: ESTRADIOL CYPIONATE
  4. XYREM [Suspect]
     Active Substance: SODIUM OXYBATE
     Indication: NARCOLEPSY
     Dosage: 2 G, BID
     Route: 048
     Dates: start: 201304, end: 201304
  5. PROVIGIL [Concomitant]
     Active Substance: MODAFINIL
  6. XYREM [Suspect]
     Active Substance: SODIUM OXYBATE
     Dosage: 4.5 G, BID
     Route: 048
     Dates: start: 201305, end: 2016
  7. FISH OIL [Concomitant]
     Active Substance: FISH OIL
  8. MIRENA [Concomitant]
     Active Substance: LEVONORGESTREL
  9. NARATRIPTAN [Concomitant]
     Active Substance: NARATRIPTAN HYDROCHLORIDE
  10. XYREM [Suspect]
     Active Substance: SODIUM OXYBATE
     Dosage: 3 G, BID
     Route: 048
     Dates: start: 201304, end: 201305
  11. MULTIVITAMIN [Concomitant]
     Active Substance: VITAMINS
  12. NORTRIPTYLINE HCL [Concomitant]
     Active Substance: NORTRIPTYLINE HYDROCHLORIDE
  13. PROTONIX [Concomitant]
     Active Substance: PANTOPRAZOLE SODIUM
  14. MIRTAZAPINE. [Concomitant]
     Active Substance: MIRTAZAPINE
  15. TOPAMAX [Concomitant]
     Active Substance: TOPIRAMATE
  16. OMEPRAZOLE. [Concomitant]
     Active Substance: OMEPRAZOLE
  17. PROCHLORPERAZINE EDISYLATE. [Concomitant]
     Active Substance: PROCHLORPERAZINE EDISYLATE
  18. PROZAC [Concomitant]
     Active Substance: FLUOXETINE HYDROCHLORIDE
  19. PREDNISONE. [Concomitant]
     Active Substance: PREDNISONE
  20. ACYCLOVIR. [Concomitant]
     Active Substance: ACYCLOVIR
  21. DEXTROAMPHETAMINE. [Concomitant]
     Active Substance: DEXTROAMPHETAMINE

REACTIONS (3)
  - Nausea [Unknown]
  - Impaired gastric emptying [Unknown]
  - Exposure during pregnancy [Not Recovered/Not Resolved]
